FAERS Safety Report 20635413 (Version 1)
Quarter: 2022Q1

REPORT INFORMATION
  Report Type: Spontaneous
  Country: US (occurrence: None)
  Receive Date: 20220324
  Receipt Date: 20220324
  Transmission Date: 20220423
  Serious: No
  Sender: FDA-Public Use
  Company Number: None

PATIENT
  Sex: Female

DRUGS (1)
  1. IMATINIB MESYLATE [Suspect]
     Active Substance: IMATINIB MESYLATE
     Indication: Hypereosinophilic syndrome
     Dosage: 100MG DALY ORAL?
     Route: 048
     Dates: start: 202111, end: 20220106

REACTIONS (3)
  - Acute hepatic failure [None]
  - Liver transplant [None]
  - Therapy interrupted [None]
